FAERS Safety Report 18939775 (Version 1)
Quarter: 2021Q1

REPORT INFORMATION
  Report Type: Spontaneous
  Country: US (occurrence: US)
  Receive Date: 20210224
  Receipt Date: 20210224
  Transmission Date: 20210420
  Serious: No
  Sender: FDA-Public Use
  Company Number: None

PATIENT
  Age: 44 Year
  Sex: Male

DRUGS (1)
  1. DOXYCYCLINE (DOXYCYCLINE HYCLATE 100MG CAP) [Suspect]
     Active Substance: DOXYCYCLINE HYCLATE
     Indication: UPPER RESPIRATORY TRACT INFECTION
     Route: 048
     Dates: start: 20201209, end: 20201218

REACTIONS (3)
  - Pruritus [None]
  - Angioedema [None]
  - Urticaria [None]

NARRATIVE: CASE EVENT DATE: 20201218
